FAERS Safety Report 19227918 (Version 1)
Quarter: 2021Q2

REPORT INFORMATION
  Report Type: Report from Study
  Country: DE (occurrence: DE)
  Receive Date: 20210507
  Receipt Date: 20210507
  Transmission Date: 20210717
  Serious: Yes (Hospitalization)
  Sender: FDA-Public Use
  Company Number: DE-TEVA-2021-DE-1907989

PATIENT
  Sex: Female
  Weight: 115 kg

DRUGS (4)
  1. JAKAVI [Suspect]
     Active Substance: RUXOLITINIB
     Indication: POLYCYTHAEMIA VERA
     Dosage: 10 MG, BID:UNIT DOSE:20MILLIGRAM
     Route: 048
     Dates: start: 20200707, end: 20201120
  2. JAKAVI [Suspect]
     Active Substance: RUXOLITINIB
     Dosage: 15 MG, BID:UNIT DOSE:30MILLIGRAM
     Route: 048
     Dates: start: 20200522, end: 20200706
  3. IBUPROFEN. [Suspect]
     Active Substance: IBUPROFEN
     Indication: PAIN
     Dosage: 1500 MILLIGRAM DAILY; 500 MG, PRN (UPTO 3 TIMES PER DAY)
     Route: 048
     Dates: start: 202011, end: 20201114
  4. BISOPROLOL [Concomitant]
     Active Substance: BISOPROLOL
     Indication: HYPERTENSION
     Dosage: 10 MILLIGRAM DAILY; QD (1?0?0)
     Route: 048
     Dates: start: 20170808

REACTIONS (2)
  - Upper gastrointestinal haemorrhage [Recovered/Resolved]
  - Abdominal distension [Unknown]

NARRATIVE: CASE EVENT DATE: 202011
